FAERS Safety Report 5747832-5 (Version None)
Quarter: 2008Q2

REPORT INFORMATION
  Report Type: 
  Country: None (occurrence: None)
  Receive Date: 20080523
  Receipt Date: 20080515
  Transmission Date: 20081010
  Serious: Yes (Hospitalization, Other)
  Sender: FDA-Public Use
  Company Number: US-ROCHE-564811

PATIENT
  Age: 52 Year
  Sex: Female

DRUGS (7)
  1. CELLCEPT [Suspect]
     Indication: RENAL TRANSPLANT
     Route: 065
     Dates: start: 20050101
  2. PROGRAF [Concomitant]
  3. PREDNISONE TAB [Concomitant]
  4. PEPCID [Concomitant]
  5. COLACE [Concomitant]
  6. ASPIRIN [Concomitant]
  7. NEUPOGEN [Concomitant]

REACTIONS (7)
  - COORDINATION ABNORMAL [None]
  - DEMYELINATION [None]
  - DIZZINESS [None]
  - JOINT RANGE OF MOTION DECREASED [None]
  - MUSCULAR WEAKNESS [None]
  - NERVOUS SYSTEM DISORDER [None]
  - NEUTROPENIA [None]
